FAERS Safety Report 13896386 (Version 1)
Quarter: 2017Q3

REPORT INFORMATION
  Report Type: Spontaneous
  Country: US (occurrence: US)
  Receive Date: 20170823
  Receipt Date: 20170823
  Transmission Date: 20171127
  Serious: Yes (Other)
  Sender: FDA-Public Use
  Company Number: US-BRAINTREE LABORATORIES-170462-1

PATIENT
  Age: 51 Year
  Sex: Female
  Weight: 45.36 kg

DRUGS (1)
  1. SUPREP BOWEL PREP [Suspect]
     Active Substance: MAGNESIUM SULFATE\POTASSIUM SULFATE\SODIUM SULFATE
     Indication: COLONOSCOPY
     Dosage: 0.5 X 6 OZ.BOTTLE
     Route: 048
     Dates: start: 20170803, end: 20170803

REACTIONS (2)
  - Hyponatraemia [None]
  - Dizziness [None]

NARRATIVE: CASE EVENT DATE: 20170803
